FAERS Safety Report 5670005-1 (Version None)
Quarter: 2008Q1

REPORT INFORMATION
  Report Type: 
  Country: None (occurrence: None)
  Receive Date: 20080317
  Receipt Date: 20080306
  Transmission Date: 20080703
  Serious: Yes (Hospitalization)
  Sender: FDA-Public Use
  Company Number: DE-BOEHRINGER INGELHEIM GMBH, GERMANY-2008-DE-01441DE

PATIENT
  Sex: Male
  Weight: 67 kg

DRUGS (2)
  1. TIPRANAVIR [Suspect]
     Indication: HIV INFECTION
     Route: 048
  2. RITONAVIR CAPSULES (VIRAMUNE REFERENCE) [Suspect]
     Indication: HIV INFECTION
     Route: 048

REACTIONS (2)
  - DEPRESSION [None]
  - DRUG ABUSE [None]
